FAERS Safety Report 9818416 (Version 1)
Quarter: 2014Q1

REPORT INFORMATION
  Report Type: Spontaneous
  Country: GB (occurrence: GB)
  Receive Date: 20140115
  Receipt Date: 20140115
  Transmission Date: 20141002
  Serious: Yes (Disabling)
  Sender: FDA-Public Use
  Company Number: GB-BAYER-2014-003677

PATIENT
  Age: 27 Year
  Sex: Female

DRUGS (2)
  1. CANESTEN COMBI 500MG PESSARY + 2% CREAM [Suspect]
     Indication: VULVOVAGINAL CANDIDIASIS
     Dosage: UNK
  2. CANESTEN COMBI 500MG PESSARY + 2% CREAM [Suspect]
     Indication: VULVOVAGINAL CANDIDIASIS
     Dosage: UNK

REACTIONS (6)
  - Chemical injury [None]
  - Pruritus [None]
  - Erythema [None]
  - Burning sensation [None]
  - Genital swelling [None]
  - Pain [None]
